FAERS Safety Report 16007099 (Version 1)
Quarter: 2019Q1

REPORT INFORMATION
  Report Type: Spontaneous
  Country: DE (occurrence: DE)
  Receive Date: 20190226
  Receipt Date: 20190226
  Transmission Date: 20190418
  Serious: Yes (Death)
  Sender: FDA-Public Use
  Company Number: DE-INCYTE CORPORATION-2019IN001538

PATIENT

DRUGS (2)
  1. JAKAVI [Suspect]
     Active Substance: RUXOLITINIB
     Indication: HODGKIN^S DISEASE
  2. JAKAVI [Suspect]
     Active Substance: RUXOLITINIB
     Indication: MANTLE CELL LYMPHOMA STAGE IV
     Dosage: UNK
     Route: 065
     Dates: start: 20160503

REACTIONS (4)
  - Hodgkin^s disease [Fatal]
  - Product use in unapproved indication [Unknown]
  - Malignant neoplasm progression [Fatal]
  - Mantle cell lymphoma recurrent [Fatal]
